FAERS Safety Report 15192297 (Version 1)
Quarter: 2018Q3

REPORT INFORMATION
  Report Type: Spontaneous
  Country: JP (occurrence: JP)
  Receive Date: 20180724
  Receipt Date: 20180724
  Transmission Date: 20181010
  Serious: Yes (Other)
  Sender: FDA-Public Use
  Company Number: JP-AMGEN-JPNSP2018100144

PATIENT

DRUGS (1)
  1. ENBREL [Suspect]
     Active Substance: ETANERCEPT
     Indication: RHEUMATOID ARTHRITIS
     Dosage: 50 MG, DAILY
     Route: 058

REACTIONS (4)
  - Pyelonephritis [Recovered/Resolved]
  - Condition aggravated [Recovered/Resolved]
  - Injection site induration [Recovered/Resolved]
  - Product use issue [Unknown]
